FAERS Safety Report 10201188 (Version 3)
Quarter: 2014Q2

REPORT INFORMATION
  Report Type: Spontaneous
  Country: US (occurrence: US)
  Receive Date: 20140528
  Receipt Date: 20140605
  Transmission Date: 20141212
  Serious: No
  Sender: FDA-Public Use
  Company Number: US-PFIZER INC-2014142540

PATIENT
  Age: 54 Year
  Sex: Female

DRUGS (17)
  1. LYRICA [Suspect]
     Dosage: 100 MG, 3X/DAY
  2. NEURONTIN [Suspect]
     Dosage: UNK
  3. ALDACTONE [Suspect]
     Dosage: UNK
  4. LIPITOR [Suspect]
     Dosage: UNK
  5. ALTACE [Concomitant]
     Dosage: UNK
  6. VITAMIN D [Concomitant]
     Dosage: UNK
  7. CELEXA [Concomitant]
     Dosage: UNK
  8. COUMADIN [Concomitant]
     Dosage: UNK
  9. HUMULIN R [Concomitant]
     Dosage: UNK
  10. HUMULIN N [Concomitant]
     Dosage: UNK
  11. LASIX [Concomitant]
     Dosage: UNK
  12. COREG [Concomitant]
     Dosage: UNK
  13. TOPAMAX [Concomitant]
     Dosage: UNK
  14. KCL [Concomitant]
     Dosage: UNK
  15. SYNTHROID [Concomitant]
     Dosage: UNK
  16. MAGNESIUM OXIDE [Concomitant]
  17. NTG [Concomitant]
     Dosage: UNK

REACTIONS (4)
  - Pain in extremity [Unknown]
  - Discomfort [Unknown]
  - Feeling abnormal [Unknown]
  - Pain [Unknown]
